FAERS Safety Report 16421977 (Version 1)
Quarter: 2019Q2

REPORT INFORMATION
  Report Type: Spontaneous
  Country: US (occurrence: US)
  Receive Date: 20190612
  Receipt Date: 20190612
  Transmission Date: 20190711
  Serious: No
  Sender: FDA-Public Use
  Company Number: US-PERRIGO-19US000303

PATIENT
  Age: 66 Year
  Sex: Female
  Weight: 58.05 kg

DRUGS (4)
  1. MINOXIDIL. [Suspect]
     Active Substance: MINOXIDIL
     Indication: ALOPECIA
     Dosage: 3/4 CAPFUL, BID
     Route: 061
     Dates: start: 201809, end: 20190107
  2. MINOXIDIL. [Suspect]
     Active Substance: MINOXIDIL
     Dosage: LESS THAN 3/4 CAPFUL, QD
     Route: 061
     Dates: start: 20190109
  3. ANTIBIOTICS [Concomitant]
     Active Substance: UNSPECIFIED INGREDIENT
     Indication: SINUSITIS
  4. ANTIBIOTICS [Concomitant]
     Active Substance: UNSPECIFIED INGREDIENT
     Indication: URINARY TRACT INFECTION
     Dosage: UNK
     Route: 065
     Dates: start: 201901

REACTIONS (3)
  - Blood pressure increased [Unknown]
  - Inappropriate schedule of product administration [Not Recovered/Not Resolved]
  - Incorrect dose administered [Not Recovered/Not Resolved]

NARRATIVE: CASE EVENT DATE: 201809
